FAERS Safety Report 4628241-9 (Version None)
Quarter: 2005Q2

REPORT INFORMATION
  Report Type: 
  Country: None (occurrence: None)
  Receive Date: 20050404
  Receipt Date: 20050321
  Transmission Date: 20051028
  Serious: Yes (Hospitalization)
  Sender: FDA-Public Use
  Company Number: 2005040474

PATIENT
  Sex: Female

DRUGS (1)
  1. ZOLOFT [Suspect]
     Indication: DEPRESSION
     Dosage: 300 MG (50 MG, 3 IN 1 D)

REACTIONS (3)
  - BIPOLAR I DISORDER [None]
  - EPILEPSY [None]
  - OVERDOSE [None]
